FAERS Safety Report 8290124-3 (Version None)
Quarter: 2012Q2

REPORT INFORMATION
  Report Type: 
  Country: None (occurrence: None)
  Receive Date: 20120417
  Receipt Date: 20120413
  Transmission Date: 20120825
  Serious: Yes (Death, Life-Threatening, Hospitalization, Other)
  Sender: FDA-Public Use
  Company Number: PHHY2011JP107884

PATIENT
  Sex: Male
  Weight: 61 kg

DRUGS (11)
  1. LEVOTHYROXINE SODIUM [Concomitant]
     Dosage: 62.5 U, UNK
     Route: 048
  2. PURSENNIDE [Concomitant]
     Dosage: 48 MG, UNK
     Route: 048
  3. AZUNOL GARGLE LIQUID [Concomitant]
     Dates: start: 20110831, end: 20111101
  4. SORAFENIB TOSILATE [Concomitant]
     Dosage: 400 MG, UNK
     Dates: start: 20091211, end: 20110831
  5. LOSARTAN POTASSIUM [Concomitant]
     Dosage: 50 MG, UNK
     Route: 048
  6. ASPIRIN [Concomitant]
     Dosage: 100 MG, UNK
     Route: 048
  7. AFINITOR [Suspect]
     Indication: METASTATIC RENAL CELL CARCINOMA
     Dosage: 10 MG, DAILY
     Route: 048
     Dates: start: 20110901, end: 20111019
  8. SIGMART [Concomitant]
     Dosage: 15 MG, UNK
     Route: 048
  9. CRESTOR [Concomitant]
     Dosage: 2.5 MG, UNK
     Route: 048
  10. BISOPROLOL FUMARATE [Concomitant]
     Dosage: 2.5 MG, UNK
     Route: 048
  11. ADALAT CC [Concomitant]
     Dosage: 60 MG, UNK
     Route: 048

REACTIONS (4)
  - MYOCARDIAL INFARCTION [None]
  - DEATH [None]
  - C-REACTIVE PROTEIN INCREASED [None]
  - ANAEMIA [None]
